FAERS Safety Report 24785507 (Version 1)
Quarter: 2024Q4

REPORT INFORMATION
  Report Type: Spontaneous
  Country: DE (occurrence: DE)
  Receive Date: 20241228
  Receipt Date: 20241228
  Transmission Date: 20250115
  Serious: Yes (Death, Other)
  Sender: AMGEN
  Company Number: DE-AMGEN-DEUSP2024251376

PATIENT

DRUGS (3)
  1. PREDNISONE [Suspect]
     Active Substance: PREDNISONE
     Indication: Hodgkin^s disease
     Dosage: UNK
     Route: 065
  2. BEACOPP [Concomitant]
     Indication: Hodgkin^s disease
     Dosage: UNK
     Route: 065
  3. BRENTUXIMAB VEDOTIN [Concomitant]
     Active Substance: BRENTUXIMAB VEDOTIN
     Indication: Hodgkin^s disease
     Dosage: UNK
     Route: 065

REACTIONS (6)
  - Death [Fatal]
  - Neurotoxicity [Unknown]
  - Peripheral sensory neuropathy [Unknown]
  - Haematotoxicity [Unknown]
  - Infection [Unknown]
  - Toxicity to various agents [Unknown]
